FAERS Safety Report 4734726-7 (Version None)
Quarter: 2005Q3

REPORT INFORMATION
  Report Type: 
  Country: None (occurrence: None)
  Receive Date: 20050804
  Receipt Date: 20050707
  Transmission Date: 20060218
  Serious: Yes (Other)
  Sender: FDA-Public Use
  Company Number: 20041206730

PATIENT
  Age: 58 Year
  Sex: Male
  Weight: 113.2 kg

DRUGS (8)
  1. AVANDIA [Suspect]
     Route: 048
     Dates: end: 20041130
  2. PROCRIT [Suspect]
     Dosage: 8000U WEEKLY
     Route: 065
  3. LANTUS [Suspect]
     Route: 065
  4. GLIPIZIDE [Suspect]
     Dosage: 10MG PER DAY
     Route: 065
     Dates: end: 20041130
  5. INSULIN [Concomitant]
  6. ZOCOR [Concomitant]
     Dosage: 60MG PER DAY
  7. CLONIDINE [Concomitant]
     Dosage: .2MG TWICE PER DAY
  8. DIAZEPAM [Concomitant]

REACTIONS (3)
  - BLOOD PRESSURE INCREASED [None]
  - OEDEMA [None]
  - WEIGHT INCREASED [None]
